FAERS Safety Report 4679896-4 (Version None)
Quarter: 2005Q2

REPORT INFORMATION
  Report Type: 
  Country: None (occurrence: None)
  Receive Date: 20050602
  Receipt Date: 20050321
  Transmission Date: 20051028
  Serious: No
  Sender: FDA-Public Use
  Company Number: US-GLAXOSMITHKLINE-A0550648A

PATIENT
  Age: 17 Year
  Sex: Male
  Weight: 117.3 kg

DRUGS (1)
  1. AUGMENTIN [Suspect]
     Indication: ILL-DEFINED DISORDER
     Dosage: 500MG TWICE PER DAY
     Route: 048
     Dates: start: 20050304, end: 20050321

REACTIONS (1)
  - URTICARIA [None]
